FAERS Safety Report 8420909-1 (Version None)
Quarter: 2012Q2

REPORT INFORMATION
  Report Type: 
  Country: None (occurrence: None)
  Receive Date: 20120608
  Receipt Date: 20120604
  Transmission Date: 20120825
  Serious: Yes (Other)
  Sender: FDA-Public Use
  Company Number: US-PFIZER INC-2012134183

PATIENT
  Sex: Female

DRUGS (1)
  1. LYRICA [Suspect]
     Dosage: UNK
     Dates: start: 20080101

REACTIONS (5)
  - THROMBOSIS [None]
  - ARTHROPATHY [None]
  - FALL [None]
  - TOOTH LOSS [None]
  - KNEE ARTHROPLASTY [None]
